FAERS Safety Report 6410739-4 (Version None)
Quarter: 2009Q4

REPORT INFORMATION
  Report Type: 
  Country: None (occurrence: None)
  Receive Date: 20091022
  Receipt Date: 20090909
  Transmission Date: 20100525
  Serious: No
  Sender: FDA-Public Use
  Company Number: A0799293A

PATIENT
  Age: 38 Year
  Sex: Female
  Weight: 49.1 kg

DRUGS (6)
  1. FLOVENT [Suspect]
     Dosage: 1PUFF TWICE PER DAY
     Route: 055
     Dates: start: 20090728
  2. ALAVERT [Concomitant]
  3. NEXIUM [Concomitant]
  4. SINGULAIR [Concomitant]
  5. MULTI-VITAMIN [Concomitant]
  6. ASCORBIC ACID [Concomitant]

REACTIONS (3)
  - ANXIETY [None]
  - EAR PRURITUS [None]
  - PRURITUS [None]
